FAERS Safety Report 8823124 (Version 1)
Quarter: 2012Q4

REPORT INFORMATION
  Report Type: 
  Country: US (occurrence: US)
  Receive Date: 20121003
  Receipt Date: 20121003
  Transmission Date: 20130627
  Serious: Yes (Other)
  Sender: FDA-Public Use
  Company Number: US-ASTRAZENECA-2012SE74081

PATIENT
  Age: 73 Year
  Sex: Male
  Weight: 90.7 kg

DRUGS (8)
  1. CRESTOR [Suspect]
     Indication: ARTERIOSCLEROSIS
     Route: 048
     Dates: start: 201201
  2. PLAVIX [Concomitant]
     Indication: CARDIAC DISORDER
  3. WARFARIN [Concomitant]
     Indication: CARDIAC DISORDER
     Dates: start: 2002
  4. LORAZEPAM [Concomitant]
     Indication: ANXIETY
     Dates: start: 2002
  5. CHANTIX [Concomitant]
     Indication: SMOKING CESSATION THERAPY
     Dates: start: 2002
  6. ALBUTEROL [Concomitant]
     Indication: ASTHMA
  7. SPIRIVA [Concomitant]
     Indication: ASTHMA
     Dates: start: 2002
  8. LEXAPRO [Concomitant]
     Indication: DEPRESSION

REACTIONS (2)
  - Carotid arteriosclerosis [Unknown]
  - Drug ineffective [Unknown]
